FAERS Safety Report 15351781 (Version 3)
Quarter: 2018Q4

REPORT INFORMATION
  Report Type: Spontaneous
  Country: US (occurrence: US)
  Receive Date: 20180905
  Receipt Date: 20181203
  Transmission Date: 20190204
  Serious: No
  Sender: FDA-Public Use
  Company Number: US-SA-2018SA243872

PATIENT
  Age: 59 Year
  Sex: Female
  Weight: 104 kg

DRUGS (1)
  1. AUBAGIO [Suspect]
     Active Substance: TERIFLUNOMIDE
     Indication: MULTIPLE SCLEROSIS
     Dosage: 14 MG, QD
     Route: 048
     Dates: start: 20180810, end: 20180917

REACTIONS (10)
  - Hypoaesthesia [Unknown]
  - Arthralgia [Unknown]
  - Fatigue [Unknown]
  - Headache [Unknown]
  - Abdominal pain [Unknown]
  - Condition aggravated [Unknown]
  - Hypertension [Unknown]
  - Depression [Unknown]
  - Amnesia [Unknown]
  - Anxiety [Unknown]

NARRATIVE: CASE EVENT DATE: 20180810
